FAERS Safety Report 11223641 (Version 2)
Quarter: 2015Q3

REPORT INFORMATION
  Report Type: Report from Study
  Country: US (occurrence: US)
  Receive Date: 20150629
  Receipt Date: 20150717
  Transmission Date: 20151125
  Serious: Yes (Life-Threatening)
  Sender: FDA-Public Use
  Company Number: US-MERCK-1506USA011579

PATIENT

DRUGS (4)
  1. TOPOTECAN [Suspect]
     Active Substance: TOPOTECAN\TOPOTECAN HYDROCHLORIDE
     Indication: NEUROBLASTOMA
     Dosage: 0.75 MG/M2 PER DOSE, 6 CYCLES
  2. ZOLINZA [Suspect]
     Active Substance: VORINOSTAT
     Indication: NEUROBLASTOMA
     Dosage: 230 MG/M2 PER DAY, 6 CYCLES
     Route: 048
  3. SORAFENIB [Suspect]
     Active Substance: SORAFENIB
     Indication: NEUROBLASTOMA
     Dosage: 160 MG/M2 PER DOSE, BID, 6 CYCLES
  4. DOXYCYCLINE. [Suspect]
     Active Substance: DOXYCYCLINE
     Indication: NEUROBLASTOMA
     Dosage: 4 MG/KG PER DAY, 6 CYCLES

REACTIONS (2)
  - Neutropenia [Unknown]
  - Thrombocytopenia [Unknown]
